FAERS Safety Report 12289260 (Version 18)
Quarter: 2017Q1

REPORT INFORMATION
  Report Type: Report from Study
  Country: CA (occurrence: CA)
  Receive Date: 20160421
  Receipt Date: 20170314
  Transmission Date: 20170428
  Serious: Yes (Other)
  Sender: FDA-Public Use
  Company Number: CA-ROCHE-1713608

PATIENT
  Age: 48 Year
  Sex: Male
  Weight: 90 kg

DRUGS (5)
  1. ACTEMRA [Suspect]
     Active Substance: TOCILIZUMAB
     Indication: RHEUMATOID ARTHRITIS
     Route: 042
     Dates: start: 20151224
  2. METHOTREXATE. [Suspect]
     Active Substance: METHOTREXATE
     Indication: PRODUCT USED FOR UNKNOWN INDICATION
     Route: 065
  3. FOLIC ACID. [Concomitant]
     Active Substance: FOLIC ACID
  4. SIMPONI [Concomitant]
     Active Substance: GOLIMUMAB
  5. ACTEMRA [Suspect]
     Active Substance: TOCILIZUMAB
     Route: 042
     Dates: start: 20160126

REACTIONS (15)
  - Pharyngeal abscess [Recovered/Resolved]
  - Pancreatic neoplasm [Unknown]
  - Blood pressure increased [Unknown]
  - Post procedural infection [Not Recovered/Not Resolved]
  - Nephrolithiasis [Unknown]
  - Nausea [Unknown]
  - Pancreatic carcinoma [Unknown]
  - Swelling [Unknown]
  - Abdominal pain [Not Recovered/Not Resolved]
  - Pituitary tumour [Unknown]
  - Vomiting [Unknown]
  - Mouth ulceration [Recovered/Resolved]
  - Spleen disorder [Unknown]
  - Weight decreased [Recovering/Resolving]
  - Infection [Not Recovered/Not Resolved]

NARRATIVE: CASE EVENT DATE: 2016
